FAERS Safety Report 9855744 (Version 3)
Quarter: 2016Q2

REPORT INFORMATION
  Report Type: Spontaneous
  Country: US (occurrence: US)
  Receive Date: 20140130
  Receipt Date: 20160419
  Transmission Date: 20160815
  Serious: Yes (Hospitalization)
  Sender: FDA-Public Use
  Company Number: US-BAYER-2014-012516

PATIENT
  Age: 23 Year
  Sex: Female
  Weight: 49.89 kg

DRUGS (1)
  1. MIRENA [Suspect]
     Active Substance: LEVONORGESTREL
     Indication: CONTRACEPTION
     Dosage: 20 MCG/24HR, CONT
     Route: 015
     Dates: start: 20120724, end: 20131101

REACTIONS (7)
  - Injury [None]
  - Emotional distress [None]
  - Pain [None]
  - Uterine perforation [None]
  - Device issue [None]
  - Genital haemorrhage [None]
  - Menorrhagia [None]

NARRATIVE: CASE EVENT DATE: 201208
